FAERS Safety Report 17899990 (Version 3)
Quarter: 2020Q4

REPORT INFORMATION
  Report Type: Spontaneous
  Country: US (occurrence: US)
  Receive Date: 20200616
  Receipt Date: 20201111
  Transmission Date: 20210113
  Serious: Yes (Hospitalization, Other)
  Sender: FDA-Public Use
  Company Number: US-TAKEDA-2020TUS026469

PATIENT
  Sex: Female

DRUGS (4)
  1. LISINOPRIL. [Suspect]
     Active Substance: LISINOPRIL
     Indication: PRODUCT USED FOR UNKNOWN INDICATION
     Dosage: UNK
     Route: 065
  2. ICLUSIG [Suspect]
     Active Substance: PONATINIB
     Indication: ACUTE LYMPHOCYTIC LEUKAEMIA
     Dosage: 30 MILLIGRAM, QD
     Route: 065
     Dates: start: 202004
  3. ICLUSIG [Suspect]
     Active Substance: PONATINIB
     Dosage: 14 MILLIGRAM
     Route: 065
  4. ICLUSIG [Suspect]
     Active Substance: PONATINIB
     Dosage: 7.5 MILLIGRAM, QD
     Route: 048

REACTIONS (5)
  - Atrial fibrillation [Unknown]
  - Cardiac disorder [Unknown]
  - Urinary tract infection [Unknown]
  - Swelling face [Unknown]
  - Angioedema [Unknown]

NARRATIVE: CASE EVENT DATE: 2020
